FAERS Safety Report 24035418 (Version 1)
Quarter: 2024Q3

REPORT INFORMATION
  Report Type: Spontaneous
  Country: US (occurrence: US)
  Receive Date: 20240701
  Receipt Date: 20240701
  Transmission Date: 20241017
  Serious: No
  Sender: MILLICENT HOLDINGS
  Company Number: US-Millicent Holdings Ltd.-MILL20241000

PATIENT
  Sex: Female

DRUGS (3)
  1. INTRAROSA [Suspect]
     Active Substance: PRASTERONE
     Indication: Vulvovaginal dryness
     Dosage: UNKNOWN
     Route: 067
     Dates: start: 20240622
  2. INTRAROSA [Suspect]
     Active Substance: PRASTERONE
     Indication: Menopause
  3. KEPPRA [Concomitant]
     Active Substance: LEVETIRACETAM
     Indication: Epilepsy
     Dosage: UNKNOWN
     Route: 065

REACTIONS (2)
  - Epileptic aura [Not Recovered/Not Resolved]
  - Off label use [Unknown]

NARRATIVE: CASE EVENT DATE: 20240622
